FAERS Safety Report 8283135-5 (Version None)
Quarter: 2012Q2

REPORT INFORMATION
  Report Type: 
  Country: None (occurrence: None)
  Receive Date: 20120413
  Receipt Date: 20120411
  Transmission Date: 20120825
  Serious: Yes (Other)
  Sender: FDA-Public Use
  Company Number: GB-GLAXOSMITHKLINE-B0737159A

PATIENT
  Sex: Female

DRUGS (4)
  1. CHLORAMBUCIL [Suspect]
     Indication: CHRONIC LYMPHOCYTIC LEUKAEMIA
     Route: 048
     Dates: start: 20110110, end: 20110705
  2. COTRIM [Concomitant]
     Dosage: 960MG PER DAY
     Dates: start: 20110110
  3. STUDY MEDICATION [Suspect]
     Indication: CHRONIC LYMPHOCYTIC LEUKAEMIA
     Route: 042
     Dates: start: 20110110, end: 20110705
  4. ALBUTEROL [Concomitant]
     Dates: start: 20110531

REACTIONS (1)
  - PNEUMONITIS [None]
